FAERS Safety Report 6729806-0 (Version None)
Quarter: 2010Q2

REPORT INFORMATION
  Report Type: 
  Country: None (occurrence: None)
  Receive Date: 20100518
  Receipt Date: 20100506
  Transmission Date: 20101027
  Serious: Yes (Death, Hospitalization)
  Sender: FDA-Public Use
  Company Number: HU-PFIZER INC-2008154174

PATIENT
  Sex: Male
  Weight: 42 kg

DRUGS (14)
  1. BLINDED *NO SUBJECT DRUG [Suspect]
     Indication: NON-SMALL CELL LUNG CANCER
     Dosage: 37.5 MG, 1X/DAY
     Route: 048
     Dates: start: 20081111, end: 20081228
  2. BLINDED *PLACEBO [Suspect]
     Indication: NON-SMALL CELL LUNG CANCER
     Dosage: 37.5 MG, 1X/DAY
     Route: 048
     Dates: start: 20081111, end: 20081228
  3. BLINDED SUNITINIB MALATE [Suspect]
     Indication: NON-SMALL CELL LUNG CANCER
     Dosage: 37.5 MG, 1X/DAY
     Route: 048
     Dates: start: 20081111, end: 20081228
  4. ERLOTINIB HYDROCHLORIDE [Suspect]
     Indication: NON-SMALL CELL LUNG CANCER
     Dosage: 150 MG, 1X/DAY
     Route: 048
     Dates: start: 20081111, end: 20081228
  5. CLINDAMYCIN HYDROCHLORIDE [Concomitant]
     Dosage: UNK
     Route: 042
     Dates: start: 20081125
  6. ATENOLOL AND CHLORTHALIDONE [Concomitant]
     Dosage: UNK
     Route: 048
     Dates: start: 20000101
  7. PENTOXIFYLLINE [Concomitant]
     Dosage: UNK
     Route: 048
     Dates: start: 20020101
  8. ALLOPURINOL [Concomitant]
     Dosage: UNK
     Route: 048
     Dates: start: 20000101
  9. TAMSULOSIN HCL [Concomitant]
     Dosage: UNK
     Route: 048
     Dates: start: 20040101
  10. ACETYLSALICYLIC ACID [Concomitant]
     Dosage: UNK
     Route: 048
     Dates: start: 20070101
  11. ACEMETACIN [Concomitant]
     Dosage: UNK
     Route: 048
     Dates: start: 20080101
  12. MEGESTROL ACETATE [Concomitant]
     Dosage: UNK
     Route: 048
     Dates: start: 20081125
  13. MOMETASONE FUROATE [Concomitant]
     Dosage: UNK
     Route: 062
     Dates: start: 20081125
  14. GENERAL NUTRIENTS/VITAMINS NOS [Concomitant]
     Dosage: UNK
     Route: 048
     Dates: start: 20080901

REACTIONS (3)
  - DISEASE PROGRESSION [None]
  - FATIGUE [None]
  - NON-SMALL CELL LUNG CANCER [None]
